FAERS Safety Report 4274958-8 (Version None)
Quarter: 2004Q1

REPORT INFORMATION
  Report Type: 
  Country: None (occurrence: None)
  Receive Date: 20040120
  Receipt Date: 20040105
  Transmission Date: 20041129
  Serious: Yes (Hospitalization, Other)
  Sender: FDA-Public Use
  Company Number: C2003-3213.01

PATIENT
  Age: 74 Year
  Sex: Male
  Weight: 83.9154 kg

DRUGS (5)
  1. EXTENDED PHENYTOIN SODIUM [Suspect]
     Indication: GRAND MAL CONVULSION
     Dosage: 100 MG QAM, 100 MG 12 NOON, 100 MG QHS, ORAL THEN 500 MG QD ORAL AND THEN 400 MG QD, ORAL
     Route: 048
     Dates: end: 20031205
  2. DILANTIN KAPSEAL [Suspect]
     Indication: GRAND MAL CONVULSION
     Dosage: 30 MG Q HS, ORAL
     Route: 048
  3. PHENOBARBITAL TAB [Concomitant]
  4. PIROXICAM [Concomitant]
  5. MULTIVITAMIN [Concomitant]

REACTIONS (1)
  - CONVULSION [None]
